FAERS Safety Report 24051450 (Version 1)
Quarter: 2024Q3

REPORT INFORMATION
  Report Type: Spontaneous
  Country: US (occurrence: US)
  Receive Date: 20240704
  Receipt Date: 20240704
  Transmission Date: 20241017
  Serious: Yes (Other)
  Sender: PFIZER
  Company Number: US-PFIZER INC-202400205072

PATIENT
  Age: 74 Year
  Sex: Male
  Weight: 96.16 kg

DRUGS (3)
  1. BRAFTOVI [Suspect]
     Active Substance: ENCORAFENIB
     Indication: Neoplasm malignant
     Dosage: 75 MILLIGRAMS CAPSULE, 4 CAPSULE PER DAY
  2. CETUXIMAB [Suspect]
     Active Substance: CETUXIMAB
     Dosage: UNK
  3. KEYTRUDA [Suspect]
     Active Substance: PEMBROLIZUMAB
     Dosage: TOOK TWO WEEKS TWO CYCLE

REACTIONS (3)
  - Pain [Unknown]
  - Arthritis [Unknown]
  - Peripheral swelling [Unknown]
